FAERS Safety Report 7276315-9 (Version None)
Quarter: 2011Q1

REPORT INFORMATION
  Report Type: 
  Country: None (occurrence: None)
  Receive Date: 20110204
  Receipt Date: 20110126
  Transmission Date: 20110831
  Serious: Yes (Hospitalization, Other)
  Sender: FDA-Public Use
  Company Number: NL-MEDIMMUNE-MEDI-0012354

PATIENT
  Sex: Male
  Weight: 8 kg

DRUGS (2)
  1. SYNAGIS [Suspect]
     Route: 030
     Dates: start: 20110124, end: 20110124
  2. SYNAGIS [Suspect]
     Route: 030
     Dates: start: 20100903, end: 20101228

REACTIONS (4)
  - SENSE OF OPPRESSION [None]
  - INFANTILE SPITTING UP [None]
  - RESPIRATORY SYNCYTIAL VIRUS TEST POSITIVE [None]
  - COUGH [None]
